FAERS Safety Report 7979149-2 (Version None)
Quarter: 2011Q4

REPORT INFORMATION
  Report Type: 
  Country: None (occurrence: None)
  Receive Date: 20111214
  Receipt Date: 20111206
  Transmission Date: 20120403
  Serious: Yes (Hospitalization)
  Sender: FDA-Public Use
  Company Number: DE-JNJFOC-20111105899

PATIENT
  Sex: Female
  Weight: 95 kg

DRUGS (4)
  1. RISPERDAL [Suspect]
     Indication: PRODUCT USED FOR UNKNOWN INDICATION
     Route: 048
  2. DIPIPERON [Suspect]
     Indication: ACCIDENTAL EXPOSURE
     Route: 048
     Dates: start: 20111114, end: 20111114
  3. RISPERDAL [Suspect]
     Route: 048
     Dates: start: 20111114, end: 20111114
  4. PANTOPRAZOLE [Suspect]
     Indication: ACCIDENTAL EXPOSURE
     Route: 048
     Dates: start: 20111114, end: 20111114

REACTIONS (1)
  - ACCIDENTAL EXPOSURE [None]
